FAERS Safety Report 14175487 (Version 1)
Quarter: 2017Q4

REPORT INFORMATION
  Report Type: Spontaneous
  Country: US (occurrence: US)
  Receive Date: 20171109
  Receipt Date: 20171109
  Transmission Date: 20180321
  Serious: No
  Sender: FDA-Public Use
  Company Number: US-ALLERGAN-1676353US

PATIENT
  Sex: Male

DRUGS (1)
  1. COMBIGAN [Suspect]
     Active Substance: BRIMONIDINE TARTRATE\TIMOLOL MALEATE
     Indication: GLAUCOMA
     Dosage: 2 GTT, BID
     Route: 047

REACTIONS (5)
  - Drug ineffective [Unknown]
  - Fatigue [Not Recovered/Not Resolved]
  - Nervousness [Not Recovered/Not Resolved]
  - Ocular hyperaemia [Unknown]
  - Asthenia [Not Recovered/Not Resolved]
